FAERS Safety Report 9257632 (Version 1)
Quarter: 2013Q2

REPORT INFORMATION
  Report Type: Spontaneous
  Country: US (occurrence: None)
  Receive Date: 20130424
  Receipt Date: 20130424
  Transmission Date: 20140414
  Serious: No
  Sender: FDA-Public Use
  Company Number: None

PATIENT
  Age: 65 Year
  Sex: Male
  Weight: 124.2 kg

DRUGS (1)
  1. CLINDAMYCIN [Suspect]
     Indication: INFECTION
     Route: 048
     Dates: start: 20121113, end: 20121123

REACTIONS (2)
  - Urticaria [None]
  - Pruritus [None]
